FAERS Safety Report 13538240 (Version 7)
Quarter: 2017Q3

REPORT INFORMATION
  Report Type: Report from Study
  Country: US (occurrence: US)
  Receive Date: 20170512
  Receipt Date: 20170907
  Transmission Date: 20171127
  Serious: Yes (Death, Hospitalization, Other)
  Sender: FDA-Public Use
  Company Number: US-GILEAD-2017-0262684

PATIENT
  Age: 83 Year
  Sex: Female

DRUGS (4)
  1. AMBRISENTAN [Suspect]
     Active Substance: AMBRISENTAN
     Indication: PULMONARY HYPERTENSION
     Dosage: 10 MG, QD
     Route: 065
     Dates: start: 20090403
  2. AMBRISENTAN [Suspect]
     Active Substance: AMBRISENTAN
     Indication: SCLERODERMA
     Dosage: 5 MG, QD
     Route: 065
     Dates: start: 20090403
  3. SPIRIVA [Concomitant]
     Active Substance: TIOTROPIUM BROMIDE MONOHYDRATE
  4. DILTIAZEM. [Concomitant]
     Active Substance: DILTIAZEM

REACTIONS (9)
  - Respiratory failure [Not Recovered/Not Resolved]
  - Intentional underdose [Not Recovered/Not Resolved]
  - Death [Fatal]
  - Asthenia [Unknown]
  - Dyspnoea [Not Recovered/Not Resolved]
  - Wrong technique in product usage process [Not Recovered/Not Resolved]
  - Dyspnoea [Unknown]
  - Unevaluable event [Unknown]
  - Pulmonary hypertension [Unknown]

NARRATIVE: CASE EVENT DATE: 20170508
